FAERS Safety Report 13517455 (Version 6)
Quarter: 2017Q3

REPORT INFORMATION
  Report Type: Report from Study
  Country: US (occurrence: US)
  Receive Date: 20170505
  Receipt Date: 20170718
  Transmission Date: 20171127
  Serious: Yes (Other)
  Sender: FDA-Public Use
  Company Number: US-AMGEN-USASL2017065705

PATIENT
  Age: 51 Year
  Sex: Female
  Weight: 70.75 kg

DRUGS (2)
  1. METHOTREXATE. [Concomitant]
     Active Substance: METHOTREXATE
     Indication: RHEUMATOID ARTHRITIS
     Dosage: 0.8 ML, QWK
     Route: 065
     Dates: start: 20170208
  2. ENBREL [Suspect]
     Active Substance: ETANERCEPT
     Indication: RHEUMATOID ARTHRITIS
     Dosage: 50 MG, QWK
     Route: 058
     Dates: start: 20170411

REACTIONS (6)
  - Autoimmune disorder [Not Recovered/Not Resolved]
  - Colitis ulcerative [Unknown]
  - Sjogren^s syndrome [Unknown]
  - Gastrointestinal ulcer [Unknown]
  - Cardiac pacemaker insertion [Unknown]
  - Rheumatoid arthritis [Not Recovered/Not Resolved]

NARRATIVE: CASE EVENT DATE: 2017
